FAERS Safety Report 23402018 (Version 1)
Quarter: 2024Q1

REPORT INFORMATION
  Report Type: Spontaneous
  Country: US (occurrence: US)
  Receive Date: 20240115
  Receipt Date: 20240115
  Transmission Date: 20240410
  Serious: No
  Sender: FDA-Public Use
  Company Number: US-SA-SAC20240111000616

PATIENT
  Sex: Female

DRUGS (12)
  1. DUPIXENT [Suspect]
     Active Substance: DUPILUMAB
     Indication: Dermatitis atopic
     Dosage: 300 MG, QOW
     Route: 058
     Dates: start: 202112
  2. OZEMPIC [Concomitant]
     Active Substance: SEMAGLUTIDE
  3. ALBUTEROL SULFATE [Concomitant]
     Active Substance: ALBUTEROL SULFATE
  4. PIOGLITAZONE [Concomitant]
     Active Substance: PIOGLITAZONE
  5. LASIX [Concomitant]
     Active Substance: FUROSEMIDE
  6. BISOPROLOL FUMARATE [Concomitant]
     Active Substance: BISOPROLOL FUMARATE
  7. OMEPRAZOLE [Concomitant]
     Active Substance: OMEPRAZOLE
  8. LOSARTAN POTASSIUM [Concomitant]
     Active Substance: LOSARTAN POTASSIUM
  9. ASPIRIN [Concomitant]
     Active Substance: ASPIRIN
  10. EZETIMIBE [Concomitant]
     Active Substance: EZETIMIBE
  11. PRAVASTATIN SODIUM [Concomitant]
     Active Substance: PRAVASTATIN SODIUM
  12. METFORMIN [Concomitant]
     Active Substance: METFORMIN HYDROCHLORIDE

REACTIONS (4)
  - COVID-19 [Unknown]
  - Cough [Unknown]
  - Illness [Not Recovered/Not Resolved]
  - Injection site pain [Unknown]
